FAERS Safety Report 25554308 (Version 1)
Quarter: 2025Q3

REPORT INFORMATION
  Report Type: Spontaneous
  Country: US (occurrence: None)
  Receive Date: 20250714
  Receipt Date: 20250714
  Transmission Date: 20251021
  Serious: Yes (Other)
  Sender: FDA-CTU
  Company Number: None

PATIENT
  Age: 37 Year
  Sex: Female
  Weight: 69.75 kg

DRUGS (1)
  1. TUBERCULIN NOS [Suspect]
     Active Substance: TUBERCULIN PURIFIED PROTEIN DERIVATIVE

REACTIONS (11)
  - Tuberculin test [None]
  - Injection site pain [None]
  - Burning sensation [None]
  - Dizziness [None]
  - Nausea [None]
  - Dizziness [None]
  - Pallor [None]
  - Feeling abnormal [None]
  - Injection site pain [None]
  - Pain in extremity [None]
  - Injection site bruising [None]

NARRATIVE: CASE EVENT DATE: 20250714
